FAERS Safety Report 21298517 (Version 1)
Quarter: 2022Q3

REPORT INFORMATION
  Report Type: Spontaneous
  Country: GB (occurrence: GB)
  Receive Date: 20220906
  Receipt Date: 20220906
  Transmission Date: 20221027
  Serious: Yes (Hospitalization)
  Sender: FDA-Public Use
  Company Number: GB-PFIZER INC-PV202200056423

PATIENT
  Sex: Female

DRUGS (1)
  1. SYNAREL [Suspect]
     Active Substance: NAFARELIN ACETATE
     Indication: Hormone replacement therapy

REACTIONS (2)
  - Rhinoplasty [Unknown]
  - Blood testosterone increased [Unknown]
